FAERS Safety Report 7506998-7 (Version None)
Quarter: 2011Q2

REPORT INFORMATION
  Report Type: 
  Country: None (occurrence: None)
  Receive Date: 20110526
  Receipt Date: 20110516
  Transmission Date: 20111010
  Serious: Yes (Other)
  Sender: FDA-Public Use
  Company Number: PHHY2011BR44645

PATIENT
  Age: 41 Year

DRUGS (2)
  1. FLUCONAZOLE [Suspect]
     Indication: PARACOCCIDIOIDES INFECTION
     Dosage: 200 MG, UNK
  2. SULFAMETHOXAZOLE AND TRIMETHOPRIM [Suspect]
     Indication: PARACOCCIDIOIDES INFECTION

REACTIONS (2)
  - HEMIPARESIS [None]
  - CEREBRAL CALCIFICATION [None]
